FAERS Safety Report 15008273 (Version 6)
Quarter: 2018Q3

REPORT INFORMATION
  Report Type: Spontaneous
  Country: RU (occurrence: RU)
  Receive Date: 20180613
  Receipt Date: 20180717
  Transmission Date: 20181010
  Serious: Yes (Hospitalization)
  Sender: FDA-Public Use
  Company Number: RU-BIOGEN-2018BI00593090

PATIENT
  Sex: Female

DRUGS (1)
  1. TYSABRI [Suspect]
     Active Substance: NATALIZUMAB
     Indication: MULTIPLE SCLEROSIS
     Dosage: 11 INFUSIONS
     Route: 042
     Dates: end: 20180511

REACTIONS (3)
  - Secondary progressive multiple sclerosis [Unknown]
  - Relapsing-remitting multiple sclerosis [Unknown]
  - Off label use [Recovered/Resolved]
